FAERS Safety Report 12797678 (Version 1)
Quarter: 2016Q3

REPORT INFORMATION
  Report Type: Spontaneous
  Country: US (occurrence: US)
  Receive Date: 20160929
  Receipt Date: 20160929
  Transmission Date: 20161109
  Serious: Yes (Hospitalization)
  Sender: FDA-Public Use
  Company Number: None

PATIENT
  Age: 25 Year
  Sex: Male
  Weight: 74 kg

DRUGS (1)
  1. ARISTADA [Suspect]
     Active Substance: ARIPIPRAZOLE LAUROXIL
     Indication: SCHIZOAFFECTIVE DISORDER
     Dosage: 662MG Q28DAYS INTRAMUSCULAR
     Route: 030
     Dates: start: 20160803

REACTIONS (3)
  - Sexually inappropriate behaviour [None]
  - Compulsive sexual behaviour [None]
  - Aggression [None]
